FAERS Safety Report 4896372-4 (Version None)
Quarter: 2006Q1

REPORT INFORMATION
  Report Type: 
  Country: None (occurrence: None)
  Receive Date: 20060126
  Receipt Date: 20060112
  Transmission Date: 20060701
  Serious: Yes (Other)
  Sender: FDA-Public Use
  Company Number: UKP06000012

PATIENT
  Age: 42 Year
  Sex: Male

DRUGS (3)
  1. ASACOL [Suspect]
     Dosage: 400 MG, ORAL
     Route: 048
  2. AZATHIOPRINE [Concomitant]
  3. CORTICOSTEROID NOS (CORTICOSTEROID NOS) [Concomitant]

REACTIONS (1)
  - CATARACT [None]
